FAERS Safety Report 5140324-6 (Version None)
Quarter: 2006Q4

REPORT INFORMATION
  Report Type: 
  Country: None (occurrence: None)
  Receive Date: 20061031
  Receipt Date: 20061017
  Transmission Date: 20070319
  Serious: Yes (Hospitalization)
  Sender: FDA-Public Use
  Company Number: PHHO2006US17373

PATIENT
  Age: 62 Year
  Sex: Male

DRUGS (2)
  1. IMATINIB MESYLATE [Suspect]
     Indication: ACUTE MYELOID LEUKAEMIA
     Dosage: 600 MG, QD
  2. PTK 787A [Suspect]
     Indication: ACUTE MYELOID LEUKAEMIA
     Dosage: 250 MG, TID
     Route: 048

REACTIONS (4)
  - COUGH [None]
  - LUNG INFILTRATION [None]
  - MUCORMYCOSIS [None]
  - PYREXIA [None]
